FAERS Safety Report 13365789 (Version 1)
Quarter: 2017Q1

REPORT INFORMATION
  Report Type: Report from Study
  Country: BR (occurrence: BR)
  Receive Date: 20170323
  Receipt Date: 20170323
  Transmission Date: 20170429
  Serious: Yes (Other)
  Sender: FDA-Public Use
  Company Number: PHHY2015BR116973

PATIENT
  Sex: Female
  Weight: 70 kg

DRUGS (5)
  1. GILENYA [Suspect]
     Active Substance: FINGOLIMOD HYDROCHLORIDE
     Indication: RELAPSING-REMITTING MULTIPLE SCLEROSIS
     Dosage: 0.5 MG, QD
     Route: 048
     Dates: start: 20150903
  2. GILENYA [Suspect]
     Active Substance: FINGOLIMOD HYDROCHLORIDE
     Dosage: 0.5 MG, QD
     Route: 048
  3. VITAMIN D3 [Concomitant]
     Active Substance: CHOLECALCIFEROL
     Indication: PRODUCT USED FOR UNKNOWN INDICATION
     Dosage: UNK
     Route: 065
  4. OMEPRAZOL [Concomitant]
     Active Substance: OMEPRAZOLE
     Indication: PRODUCT USED FOR UNKNOWN INDICATION
     Dosage: UNK
     Route: 065
  5. GILENYA [Suspect]
     Active Substance: FINGOLIMOD HYDROCHLORIDE
     Dosage: 0.5 MG, Q5W (MONDAY TO FRIDAY)
     Route: 048

REACTIONS (21)
  - Cough [Recovered/Resolved]
  - Pulmonary pain [Unknown]
  - Dysstasia [Recovering/Resolving]
  - Herpes virus infection [Unknown]
  - Pneumonia [Unknown]
  - Immunodeficiency [Recovering/Resolving]
  - Influenza like illness [Recovered/Resolved]
  - Dermatitis allergic [Unknown]
  - Chest pain [Recovered/Resolved]
  - Ataxia [Recovering/Resolving]
  - Dyspnoea [Recovered/Resolved]
  - Multiple sclerosis relapse [Recovering/Resolving]
  - Asthenia [Recovering/Resolving]
  - Urinary incontinence [Recovering/Resolving]
  - Neuritis [Recovering/Resolving]
  - JC virus infection [Unknown]
  - Coordination abnormal [Recovering/Resolving]
  - Paraesthesia [Recovering/Resolving]
  - Abasia [Unknown]
  - Fall [Unknown]
  - Prescribed underdose [Unknown]
